FAERS Safety Report 6318577 (Version 2)
Quarter: 2012Q4

REPORT INFORMATION
  Report Type: 
  Country: SE (occurrence: SE)
  Receive Date: 20070523
  Receipt Date: 20121015
  Transmission Date: 20130627
  Serious: Yes (Hospitalization)
  Sender: FDA-Public Use
  Company Number: SE-PFIZER INC-2007039180

PATIENT
  Age: 81 Year
  Sex: Male

DRUGS (20)
  1. LYRICA [Suspect]
     Indication: PAIN IN EXTREMITY
     Route: 048
     Dates: end: 20070220
  2. DOLCONTIN [Suspect]
     Indication: PAIN IN EXTREMITY
     Dosage: UNK
     Route: 048
  3. SELOKEN ZOC [Concomitant]
     Route: 048
  4. NOVORAPID [Concomitant]
  5. CIPRALEX [Concomitant]
     Route: 048
  6. MOVICOL [Concomitant]
     Route: 048
  7. MIRTAZAPINE [Concomitant]
     Route: 048
  8. FUROSEMIDE [Concomitant]
     Route: 048
  9. NITROMEX [Concomitant]
     Route: 048
  10. PANODIL [Concomitant]
     Route: 048
  11. STESOLID [Concomitant]
     Route: 048
  12. LAXOBERAL [Concomitant]
     Route: 048
  13. SPIRONOLACTONE [Concomitant]
     Route: 048
  14. SUSCARD [Concomitant]
     Route: 048
  15. TROMBYL [Concomitant]
     Route: 048
  16. IMDUR [Concomitant]
     Route: 048
  17. CANODERM CREAM [Concomitant]
  18. PANTOLOC ^SOLVAY^ [Concomitant]
     Route: 048
  19. ZOPICLONE [Concomitant]
     Route: 048
  20. NOVOMIX [Concomitant]
     Route: 048

REACTIONS (1)
  - Fatigue [Recovered/Resolved]
